FAERS Safety Report 10619674 (Version 1)
Quarter: 2014Q4

REPORT INFORMATION
  Report Type: Spontaneous
  Country: FR (occurrence: FR)
  Receive Date: 20141202
  Receipt Date: 20141202
  Transmission Date: 20150529
  Serious: Yes (Other)
  Sender: FDA-Public Use
  Company Number: FR-BRISTOL-MYERS SQUIBB COMPANY-21634787

PATIENT
  Age: 4 Day
  Sex: Male

DRUGS (5)
  1. TENORETIC [Suspect]
     Active Substance: ATENOLOL\CHLORTHALIDONE
     Dosage: 50MG+12.5MG
     Route: 064
  2. TERCIAN [Suspect]
     Active Substance: CYAMEMAZINE
     Route: 064
  3. PARKINANE [Suspect]
     Active Substance: TRIHEXYPHENIDYL HYDROCHLORIDE
     Route: 064
  4. ABILIFY [Suspect]
     Active Substance: ARIPIPRAZOLE
     Route: 064
  5. SEROPLEX [Suspect]
     Active Substance: ESCITALOPRAM OXALATE
     Route: 064

REACTIONS (4)
  - Patent ductus arteriosus [Not Recovered/Not Resolved]
  - Ventricular septal defect [Not Recovered/Not Resolved]
  - Foetal exposure during pregnancy [Unknown]
  - Trisomy 21 [Not Recovered/Not Resolved]

NARRATIVE: CASE EVENT DATE: 2014
